FAERS Safety Report 18954215 (Version 1)
Quarter: 2021Q1

REPORT INFORMATION
  Report Type: Spontaneous
  Country: BR (occurrence: BR)
  Receive Date: 20210301
  Receipt Date: 20210301
  Transmission Date: 20210420
  Serious: Yes (Other)
  Sender: FDA-Public Use
  Company Number: BR-TAKEDA-2021TUS005762

PATIENT
  Sex: Female
  Weight: 56 kg

DRUGS (3)
  1. MESALAZINE [Suspect]
     Active Substance: MESALAMINE
     Indication: COLITIS ULCERATIVE
     Dosage: UNK
     Route: 065
  2. ROZEREM [Suspect]
     Active Substance: RAMELTEON
     Indication: INSOMNIA
     Dosage: 8 MILLIGRAM, QD
     Route: 065
     Dates: start: 20200831, end: 20210118
  3. DESVENLAFAXINE. [Concomitant]
     Active Substance: DESVENLAFAXINE
     Dosage: 100 MILLIGRAM
     Route: 065
     Dates: end: 20210118

REACTIONS (4)
  - Insomnia [Unknown]
  - Colitis ulcerative [Unknown]
  - Exposure during pregnancy [Unknown]
  - Gestational trophoblastic detachment [Unknown]
